FAERS Safety Report 25132575 (Version 1)
Quarter: 2025Q1

REPORT INFORMATION
  Report Type: Report from Study
  Country: US (occurrence: US)
  Receive Date: 20250328
  Receipt Date: 20250328
  Transmission Date: 20250409
  Serious: Yes (Death, Hospitalization, Other)
  Sender: JAZZ
  Company Number: US-JAZZ PHARMACEUTICALS-2025-US-007222

PATIENT
  Age: 1 Year
  Sex: Male

DRUGS (5)
  1. EPIDIOLEX [Suspect]
     Active Substance: CANNABIDIOL
     Indication: Severe myoclonic epilepsy of infancy
     Route: 048
     Dates: start: 20250121
  2. EPIDIOLEX [Suspect]
     Active Substance: CANNABIDIOL
     Dosage: 0.6 MILLILITER, BID
     Dates: start: 202502
  3. EPIDIOLEX [Suspect]
     Active Substance: CANNABIDIOL
     Dosage: 0.95 MILLILITER, BID
  4. ONFI [Suspect]
     Active Substance: CLOBAZAM
     Indication: Product used for unknown indication
  5. DEPAKOTE [Concomitant]
     Active Substance: DIVALPROEX SODIUM
     Indication: Product used for unknown indication

REACTIONS (5)
  - Death [Fatal]
  - Seizure [Unknown]
  - Seizure [Recovering/Resolving]
  - Pneumonia [Unknown]
  - Sedation [Unknown]

NARRATIVE: CASE EVENT DATE: 20250201
